FAERS Safety Report 8194404 (Version 2)
Quarter: 2012Q4

REPORT INFORMATION
  Report Type: 
  Country: US (occurrence: US)
  Receive Date: 20111023
  Receipt Date: 20121112
  Transmission Date: 20130627
  Serious: Yes (Hospitalization, Other)
  Sender: FDA-Public Use
  Company Number: US-ELI_LILLY_AND_COMPANY-US201110004917

PATIENT
  Age: 63 Year
  Sex: Female

DRUGS (9)
  1. BYETTA [Suspect]
     Dosage: 10 ug, bid
  2. SYNTHROID [Concomitant]
     Dosage: 50 ug, qd
     Route: 048
  3. GLUCOPHAGE [Concomitant]
     Dosage: 500 mg, bid
     Route: 048
  4. HYZAAR [Concomitant]
     Dosage: 1 DF, qd
     Route: 048
  5. ZOLOFT [Concomitant]
     Dosage: UNK, qd
     Route: 048
  6. METOPROLOL [Concomitant]
     Dosage: 100 mg, bid
     Route: 048
  7. LIPITOR [Concomitant]
     Dosage: 40 mg, qd
     Route: 048
  8. IMDUR [Concomitant]
     Dosage: 30 mg, qd
     Route: 048
  9. TRAZODONE [Concomitant]
     Dosage: 100 mg, each evening
     Route: 048

REACTIONS (1)
  - Pancreatitis [Unknown]
